FAERS Safety Report 6530234-1 (Version None)
Quarter: 2010Q1

REPORT INFORMATION
  Report Type: 
  Country: None (occurrence: None)
  Receive Date: 20100107
  Receipt Date: 20100104
  Transmission Date: 20100710
  Serious: Yes (Other)
  Sender: FDA-Public Use
  Company Number: GB-PFIZER INC-2010000167

PATIENT
  Age: 48 Year
  Sex: Female
  Weight: 50 kg

DRUGS (6)
  1. CHAMPIX [Suspect]
     Indication: SMOKING CESSATION THERAPY
     Dosage: 0.5 MG, UNK
     Route: 048
     Dates: start: 20091205
  2. ACETYLSALICYLIC ACID [Concomitant]
     Dosage: 75 MG, 1X/DAY
     Route: 048
  3. BISOPROLOL FUMARATE [Concomitant]
     Dosage: 1.25 MG, 1X/DAY
     Route: 048
  4. INFLUENZA VACCINE [Concomitant]
     Indication: IMMUNISATION
     Dosage: UNK
     Route: 030
     Dates: start: 20091204, end: 20091204
  5. SIMVASTATIN [Concomitant]
     Dosage: 40 MG, 1X/DAY
     Route: 048
  6. VENLAFAXINE [Concomitant]
     Dosage: 75 MG, 3X/DAY
     Route: 048

REACTIONS (12)
  - ASTHENIA [None]
  - CHEST PAIN [None]
  - FEELING COLD [None]
  - HEADACHE [None]
  - MALAISE [None]
  - MUSCLE SPASMS [None]
  - NAUSEA [None]
  - PYREXIA [None]
  - SWELLING FACE [None]
  - SWOLLEN TONGUE [None]
  - TINNITUS [None]
  - TONGUE COATED [None]
